FAERS Safety Report 21339961 (Version 4)
Quarter: 2022Q4

REPORT INFORMATION
  Report Type: Report from Study
  Country: KR (occurrence: KR)
  Receive Date: 20220915
  Receipt Date: 20221020
  Transmission Date: 20230113
  Serious: Yes (Hospitalization, Other)
  Sender: FDA-Public Use
  Company Number: KR-ONO-2022KR024821

PATIENT
  Age: 73 Year
  Sex: Male
  Weight: 62.5 kg

DRUGS (14)
  1. IPILIMUMAB [Suspect]
     Active Substance: IPILIMUMAB
     Indication: Gastric cancer
     Dosage: THE PATIENT RECEIVED SINGLE DOSE ONLY ON 29-AUG-2022
     Route: 065
     Dates: start: 20220829, end: 20220905
  2. GIMERACIL\OTERACIL\TEGAFUR [Suspect]
     Active Substance: GIMERACIL\OTERACIL\TEGAFUR
     Indication: Gastric cancer
     Dosage: THE PATIENT RECEIVED MOST RECENT DOSE ON 04-SEP-2022
     Route: 048
     Dates: start: 20220829, end: 20220905
  3. OXALIPLATIN [Suspect]
     Active Substance: OXALIPLATIN
     Indication: Gastric cancer
     Dosage: THE PATIENT RECEIVED SINGLE DOSE ONLY ON 29-AUG-2022
     Route: 065
     Dates: start: 20220829, end: 20220905
  4. DEXAMETHASONE [Concomitant]
     Active Substance: DEXAMETHASONE
     Indication: Product used for unknown indication
     Route: 048
     Dates: start: 20220829, end: 20220901
  5. DEXAMETHASONE [Concomitant]
     Active Substance: DEXAMETHASONE
     Route: 065
     Dates: start: 20220829, end: 20220829
  6. ALBUMIN HUMAN [Concomitant]
     Active Substance: ALBUMIN HUMAN
     Indication: Product used for unknown indication
     Route: 065
     Dates: start: 20220905, end: 20220905
  7. GASTER [Concomitant]
     Active Substance: FAMOTIDINE
     Indication: Product used for unknown indication
     Dosage: 20 MG
     Route: 065
     Dates: start: 20220829, end: 20220829
  8. GASTER [Concomitant]
     Active Substance: FAMOTIDINE
     Dosage: 40 MG
     Route: 048
     Dates: start: 20220829, end: 20220901
  9. SODIUM CHLORIDE [Concomitant]
     Active Substance: SODIUM CHLORIDE
     Indication: Product used for unknown indication
     Route: 065
     Dates: start: 20220905, end: 20220905
  10. ALOXI [Concomitant]
     Active Substance: PALONOSETRON HYDROCHLORIDE
     Indication: Product used for unknown indication
     Dosage: 0.25 MG
     Route: 065
     Dates: start: 20220829, end: 20220829
  11. PENIRAMIN [Concomitant]
     Indication: Product used for unknown indication
     Route: 065
  12. SANCUSO [Concomitant]
     Active Substance: GRANISETRON
     Indication: Product used for unknown indication
     Route: 065
  13. HERBEN SR [Concomitant]
     Indication: Product used for unknown indication
     Route: 065
  14. BISOPROLOL FUMARATE [Concomitant]
     Active Substance: BISOPROLOL FUMARATE
     Indication: Product used for unknown indication

REACTIONS (1)
  - Peritonitis [Not Recovered/Not Resolved]

NARRATIVE: CASE EVENT DATE: 20220905
